FAERS Safety Report 12838553 (Version 3)
Quarter: 2017Q4

REPORT INFORMATION
  Report Type: Report from Study
  Country: US (occurrence: US)
  Receive Date: 20161012
  Receipt Date: 20171018
  Transmission Date: 20180320
  Serious: Yes (Death, Hospitalization, Other)
  Sender: FDA-Public Use
  Company Number: US-BAYER-2015-180089

PATIENT
  Age: 43 Year
  Sex: Female
  Weight: 55.78 kg

DRUGS (39)
  1. HEPARIN [Concomitant]
     Active Substance: HEPARIN SODIUM
     Indication: THROMBOSIS PROPHYLAXIS
     Dosage: 5000 U, BID
     Route: 058
  2. VENTOLIN HFA [Concomitant]
     Active Substance: ALBUTEROL SULFATE
     Dosage: UNK
     Route: 055
     Dates: start: 20140804
  3. CHLORPHENIRAMINE. [Concomitant]
     Active Substance: CHLORPHENIRAMINE
     Dosage: 4 MG, UNK
     Dates: start: 20140419, end: 20150127
  4. HYDROCODONE POLISTIREX [Concomitant]
     Active Substance: HYDROCODONE POLISTIREX
     Dosage: 5 ML, BID
     Dates: start: 20160523
  5. ZOFRAN [Concomitant]
     Active Substance: ONDANSETRON HYDROCHLORIDE
     Indication: NAUSEA
     Dosage: 8 MG, TID
  6. PAROXETINE. [Concomitant]
     Active Substance: PAROXETINE
     Dosage: 10 MG, QD
     Dates: start: 20160421
  7. PROMETHAZINE [Concomitant]
     Active Substance: PROMETHAZINE\PROMETHAZINE HYDROCHLORIDE
     Indication: NAUSEA
     Dosage: UNK
  8. IMURAN [Concomitant]
     Active Substance: AZATHIOPRINE
     Dosage: 50 MG, BID
     Dates: start: 20160419
  9. METOLAZONE. [Concomitant]
     Active Substance: METOLAZONE
     Dosage: 2.5 MG, QD
     Route: 048
     Dates: start: 20160620
  10. REVATIO [Concomitant]
     Active Substance: SILDENAFIL CITRATE
     Indication: PULMONARY HYPERTENSION
     Dosage: 20 MG, TID
     Route: 048
     Dates: start: 20150430, end: 20160331
  11. DILTIAZEM. [Concomitant]
     Active Substance: DILTIAZEM
     Dosage: UNK
  12. PAXIL [Concomitant]
     Active Substance: PAROXETINE HYDROCHLORIDE
     Dosage: DAILY DOSE 10 MG
     Route: 048
  13. PREDNISONE. [Concomitant]
     Active Substance: PREDNISONE
     Indication: SARCOIDOSIS
     Dosage: 15 MG, QD
     Route: 048
     Dates: start: 20140226, end: 20150127
  14. ADEMPAS [Suspect]
     Active Substance: RIOCIGUAT
     Indication: COR PULMONALE CHRONIC
     Dosage: 2.5 MG, TID
     Route: 048
     Dates: end: 20150410
  15. ADEMPAS [Suspect]
     Active Substance: RIOCIGUAT
     Indication: COR PULMONALE CHRONIC
     Dosage: 1.5 MG, TID
     Route: 048
     Dates: start: 20160329
  16. XANAX [Concomitant]
     Active Substance: ALPRAZOLAM
     Dosage: 0.5 MG, BID
     Route: 048
  17. ZYRTEC [CETIRIZINE HYDROCHLORIDE] [Concomitant]
     Dosage: 10 MG, QD
     Route: 048
     Dates: start: 20140226
  18. TYVASO [Concomitant]
     Active Substance: TREPROSTINIL
     Indication: PULMONARY HYPERTENSION
     Dosage: 0.6MG/ML
     Route: 055
     Dates: start: 20160331
  19. ADEMPAS [Suspect]
     Active Substance: RIOCIGUAT
     Indication: COR PULMONALE CHRONIC
     Dosage: UNK
     Route: 048
     Dates: start: 20141112
  20. ADEMPAS [Suspect]
     Active Substance: RIOCIGUAT
     Indication: PULMONARY HYPERTENSION
     Dosage: 2 MG, QD
     Route: 048
     Dates: start: 20150212
  21. ADEMPAS [Suspect]
     Active Substance: RIOCIGUAT
     Indication: COR PULMONALE CHRONIC
     Dosage: 1.5 MG, TID
     Route: 048
     Dates: start: 20150929
  22. LETAIRIS [Suspect]
     Active Substance: AMBRISENTAN
     Dosage: 5 MG, QD
     Route: 048
     Dates: start: 20150825
  23. LETAIRIS [Suspect]
     Active Substance: AMBRISENTAN
     Dosage: 10 MG, QD
     Route: 048
     Dates: start: 20160418
  24. TESSALON [Concomitant]
     Active Substance: BENZONATATE
     Dosage: 100 MG, TID
     Dates: start: 20140804
  25. FUROSEMIDE. [Concomitant]
     Active Substance: FUROSEMIDE
     Dosage: 40 MG, QD
     Route: 048
     Dates: start: 20160620
  26. ALBUTEROL W/IPRATROPIUM [Concomitant]
     Active Substance: ALBUTEROL\IPRATROPIUM
     Dosage: 3 ML, QID
     Route: 055
  27. PAROXETINE. [Concomitant]
     Active Substance: PAROXETINE
     Dosage: 10 MG, QD
     Route: 048
     Dates: start: 20150929
  28. IMURAN [Concomitant]
     Active Substance: AZATHIOPRINE
     Dosage: 50 MG, BID
     Dates: start: 20140226, end: 20160418
  29. CLONAZEPAM. [Concomitant]
     Active Substance: CLONAZEPAM
     Dosage: UNK MG, UNK
     Route: 048
     Dates: start: 20150324
  30. ADEMPAS [Suspect]
     Active Substance: RIOCIGUAT
     Indication: COR PULMONALE CHRONIC
     Dosage: 1 MG, TID
     Route: 048
     Dates: start: 20160329
  31. OXYGEN. [Concomitant]
     Active Substance: OXYGEN
     Indication: CHRONIC RESPIRATORY FAILURE
     Dosage: 5 L, Q1MIN
  32. PROAIR HFA [Concomitant]
     Active Substance: ALBUTEROL SULFATE
     Dosage: UNK
     Route: 055
  33. CLARITIN [Concomitant]
     Active Substance: LORATADINE
     Dosage: 10 MG, QD
     Route: 048
  34. IMURAN [Concomitant]
     Active Substance: AZATHIOPRINE
     Dosage: 50 MG, BID
     Dates: start: 20150929, end: 20160419
  35. DILTIAZEM HCL [Concomitant]
     Active Substance: DILTIAZEM HYDROCHLORIDE
     Dosage: 120 MG, QD
     Route: 048
     Dates: start: 20140226
  36. ADVAIR DISKUS [Concomitant]
     Active Substance: FLUTICASONE PROPIONATE\SALMETEROL XINAFOATE
     Dosage: UNK
     Route: 055
     Dates: start: 20160324
  37. CHLORPHENIRAMINE POLISTIREX [Concomitant]
     Dosage: UNK
  38. POTASSIUM CHLORIDE. [Concomitant]
     Active Substance: POTASSIUM CHLORIDE
     Dosage: UNK
  39. CARDIZEM [Concomitant]
     Active Substance: DILTIAZEM HYDROCHLORIDE
     Dosage: UNK

REACTIONS (31)
  - Asthma [None]
  - Decreased appetite [None]
  - Acute respiratory failure [Fatal]
  - Dyspnoea [Not Recovered/Not Resolved]
  - Electrolyte imbalance [None]
  - Swelling face [Fatal]
  - Sarcoidosis [Fatal]
  - Asthenia [Not Recovered/Not Resolved]
  - Swelling face [None]
  - Labelled drug-drug interaction medication error [None]
  - Fluid overload [Unknown]
  - Supraventricular tachycardia [None]
  - Weight decreased [None]
  - Hyponatraemia [None]
  - Swelling [None]
  - Pneumonia [Not Recovered/Not Resolved]
  - Dehydration [None]
  - Cor pulmonale [Fatal]
  - Acute respiratory failure [None]
  - Oxygen saturation decreased [None]
  - Hypokalaemia [None]
  - Cardiac failure congestive [Fatal]
  - Weight increased [None]
  - Heart rate increased [None]
  - Anxiety disorder [None]
  - Peripheral swelling [Fatal]
  - Cardiac failure congestive [Unknown]
  - Dyspnoea [Recovering/Resolving]
  - Hypochloraemia [None]
  - Metabolic alkalosis [None]
  - Weight decreased [None]

NARRATIVE: CASE EVENT DATE: 201502
